FAERS Safety Report 19785078 (Version 5)
Quarter: 2022Q3

REPORT INFORMATION
  Report Type: Spontaneous
  Country: JP (occurrence: JP)
  Receive Date: 20210903
  Receipt Date: 20220714
  Transmission Date: 20221026
  Serious: No
  Sender: FDA-Public Use
  Company Number: JP-GSKNCCC-CASE-01291837_AE-48847

PATIENT

DRUGS (14)
  1. FLUTICASONE FUROATE\VILANTEROL TRIFENATATE [Suspect]
     Active Substance: FLUTICASONE FUROATE\VILANTEROL TRIFENATATE
     Indication: Asthma
     Dosage: 200 UG (1 INHALATION), QD (BEFORE BEDTIME)
     Route: 055
     Dates: start: 20210401, end: 20210831
  2. FLUTICASONE FUROATE\VILANTEROL TRIFENATATE [Suspect]
     Active Substance: FLUTICASONE FUROATE\VILANTEROL TRIFENATATE
     Dosage: 200 UG (1 INHALATION), ONCE IN EVERY 2 DAYS (BEFORE A MEAL)
     Route: 055
     Dates: start: 20210904
  3. FLUTICASONE FUROATE [Concomitant]
     Active Substance: FLUTICASONE FUROATE
     Indication: Rhinitis allergic
     Dosage: 110 UG/DAY
     Route: 045
     Dates: start: 20210311
  4. GENINAX TABLETS [Concomitant]
     Indication: Acute sinusitis
     Dosage: UNK
     Dates: start: 20210701
  5. GENINAX TABLETS [Concomitant]
     Dosage: 400 MG/DAY
     Route: 048
     Dates: start: 20210727, end: 20210802
  6. CLARITHROMYCIN [Concomitant]
     Active Substance: CLARITHROMYCIN
     Indication: Acute sinusitis
     Dosage: UNK
     Dates: start: 20210701
  7. CLARITHROMYCIN [Concomitant]
     Active Substance: CLARITHROMYCIN
     Dosage: 400 MG/DAY
     Route: 048
     Dates: start: 20210803, end: 20210822
  8. CLARITHROMYCIN [Concomitant]
     Active Substance: CLARITHROMYCIN
     Dosage: 200 MG/DAY
     Route: 048
     Dates: start: 20210823, end: 20210830
  9. OLOPATADINE HYDROCHLORIDE [Concomitant]
     Active Substance: OLOPATADINE HYDROCHLORIDE
     Indication: Rhinitis allergic
     Dosage: 10 MG/DAY
     Route: 048
     Dates: start: 20210708
  10. MONTELUKAST [Concomitant]
     Active Substance: MONTELUKAST SODIUM
     Indication: Asthma
     Dosage: 10 MG/DAY
     Route: 048
     Dates: start: 20210311
  11. CARBOCYSTEINE [Concomitant]
     Active Substance: CARBOCYSTEINE
     Indication: Sinusitis
     Dosage: 1500 MG/DAY
     Route: 048
     Dates: start: 20210727
  12. CARBOCYSTEINE [Concomitant]
     Active Substance: CARBOCYSTEINE
     Indication: Productive cough
  13. CALONAL [Concomitant]
     Active Substance: ACETAMINOPHEN
     Indication: Sinus headache
     Dosage: 400 MG, AT HEADACHE (400 MG/DOSE, BID)
     Route: 048
     Dates: start: 20210727, end: 20210909
  14. MUCOSOLVAN L TABLET [Concomitant]
     Indication: Productive cough
     Dosage: 45 MG/DAY
     Route: 048
     Dates: start: 20210708

REACTIONS (3)
  - Oral candidiasis [Recovered/Resolved]
  - Vulvovaginal candidiasis [Recovered/Resolved]
  - Inappropriate schedule of product administration [Unknown]

NARRATIVE: CASE EVENT DATE: 20210830
